FAERS Safety Report 7579729-2 (Version None)
Quarter: 2011Q2

REPORT INFORMATION
  Report Type: 
  Country: None (occurrence: None)
  Receive Date: 20110629
  Receipt Date: 20110620
  Transmission Date: 20111010
  Serious: Yes (Hospitalization)
  Sender: FDA-Public Use
  Company Number: JP-ASTELLAS-2011JP003659

PATIENT
  Age: 42 Year
  Sex: Male
  Weight: 60 kg

DRUGS (35)
  1. VANCOMYCIN [Suspect]
     Indication: STAPHYLOCOCCAL BACTERAEMIA
  2. PENTASA [Concomitant]
     Dosage: 3000 MG, UNKNOWN/D
     Route: 048
     Dates: start: 20110204, end: 20110218
  3. FERROUS SULFATE TAB [Concomitant]
     Indication: ANAEMIA
     Dosage: 1 DF, UNKNOWN/D
     Route: 048
     Dates: start: 20100802, end: 20100921
  4. MUCOSTA [Concomitant]
     Dosage: 100 MG, UNKNOWN/D
     Route: 048
     Dates: start: 20100802, end: 20100921
  5. CIPROFLOXACIN [Concomitant]
     Dosage: 600 MG, UNKNOWN/D
     Route: 065
     Dates: start: 20100921, end: 20101015
  6. LINEZOLID [Concomitant]
     Indication: STAPHYLOCOCCAL BACTERAEMIA
  7. PENTASA [Concomitant]
     Dosage: 500 MG, UNKNOWN/D
     Route: 048
     Dates: start: 20101112, end: 20101119
  8. PENTASA [Concomitant]
     Dosage: 4000 MG, UNKNOWN/D
     Route: 048
     Dates: start: 20110219
  9. SULFASALAZINE [Suspect]
     Dosage: 4500 MG, UNKNOWN/D
     Route: 048
     Dates: start: 20100913, end: 20100921
  10. VANCOMYCIN [Suspect]
     Indication: PULMONARY EMBOLISM
  11. VANCOMYCIN [Suspect]
     Indication: SEPTIC EMBOLUS
  12. PENTASA [Concomitant]
     Dosage: 1500 MG, UNKNOWN/D
     Route: 048
     Dates: start: 20101218, end: 20110121
  13. TACROLIMUS [Suspect]
     Indication: COLITIS ULCERATIVE
     Dosage: 2 MG, BID
     Route: 048
     Dates: start: 20100926, end: 20101007
  14. TACROLIMUS [Suspect]
     Dosage: 1.25 MG, BID
     Route: 048
     Dates: start: 20101102, end: 20101111
  15. SULFASALAZINE [Suspect]
     Indication: COLITIS ULCERATIVE
     Dosage: 3000 MG, UNKNOWN/D
     Route: 048
     Dates: start: 20100802, end: 20100830
  16. TACROLIMUS [Suspect]
     Dosage: 3 MG, BID
     Route: 048
     Dates: start: 20100921, end: 20100922
  17. TACROLIMUS [Suspect]
     Dosage: 0.75 MG, BID
     Route: 048
     Dates: start: 20101008, end: 20101029
  18. TACROLIMUS [Suspect]
     Dosage: 1.5 MG, BID
     Route: 048
     Dates: start: 20101112, end: 20110120
  19. LINEZOLID [Concomitant]
     Indication: DEVICE RELATED INFECTION
     Dosage: UNK
     Route: 065
  20. LINEZOLID [Concomitant]
     Indication: SEPTIC EMBOLUS
  21. SULFASALAZINE [Suspect]
     Dosage: 4500 MG, UNKNOWN/D
     Route: 048
     Dates: start: 20101014, end: 20101015
  22. PENTASA [Concomitant]
     Dosage: 2000 MG, UNKNOWN/D
     Route: 048
     Dates: start: 20100802, end: 20100830
  23. FOLIC ACID [Concomitant]
     Dosage: 10 MG, UNKNOWN/D
     Route: 048
     Dates: start: 20100802, end: 20100921
  24. GANCICLOVIR [Concomitant]
     Indication: CYTOMEGALOVIRUS ENTEROCOLITIS
     Dosage: 300 MG, UNKNOWN/D
     Route: 065
     Dates: start: 20100921, end: 20101005
  25. ZYVOX [Concomitant]
     Dosage: 1.2 MG, UNKNOWN/D
     Route: 065
     Dates: start: 20101022, end: 20101102
  26. LINEZOLID [Concomitant]
     Indication: PULMONARY EMBOLISM
  27. TACROLIMUS [Suspect]
     Dosage: 2.5 MG, BID
     Route: 048
     Dates: start: 20100923, end: 20100925
  28. ASACOL [Concomitant]
     Dosage: 360 MG, UNKNOWN/D
     Route: 048
     Dates: start: 20100801, end: 20100913
  29. PENTASA [Concomitant]
     Dosage: 250 MG, UNKNOWN/D
     Dates: start: 20101101, end: 20101111
  30. ROCEPHIN [Concomitant]
     Indication: ORCHITIS
     Dosage: 1 G, UNKNOWN/D
     Route: 065
     Dates: start: 20101015, end: 20101029
  31. TACROLIMUS [Suspect]
     Dosage: 1 MG, BID
     Route: 048
     Dates: start: 20101030, end: 20101101
  32. VANCOMYCIN [Suspect]
     Indication: DEVICE RELATED INFECTION
     Dosage: 1.5 G, UNKNOWN/D
     Route: 048
     Dates: start: 20101006, end: 20101021
  33. PENTASA [Concomitant]
     Dosage: 1000 MG, UNKNOWN/D
     Route: 048
     Dates: start: 20101120, end: 20101217
  34. PENTASA [Concomitant]
     Dosage: 2000 MG, UNKNOWN/D
     Route: 048
     Dates: start: 20110122, end: 20110203
  35. ROCEPHIN [Concomitant]
     Indication: EPIDIDYMITIS

REACTIONS (9)
  - PULMONARY EMBOLISM [None]
  - ORCHITIS [None]
  - DRUG HYPERSENSITIVITY [None]
  - DEVICE RELATED INFECTION [None]
  - STAPHYLOCOCCAL BACTERAEMIA [None]
  - RENAL IMPAIRMENT [None]
  - EPIDIDYMITIS [None]
  - SEPTIC EMBOLUS [None]
  - HYPOMAGNESAEMIA [None]
